FAERS Safety Report 6461733-9 (Version None)
Quarter: 2009Q4

REPORT INFORMATION
  Report Type: 
  Country: None (occurrence: None)
  Receive Date: 20091130
  Receipt Date: 20091116
  Transmission Date: 20100525
  Serious: Yes (Other)
  Sender: FDA-Public Use
  Company Number: PHHY2009DE50659

PATIENT
  Sex: Male

DRUGS (1)
  1. EXTAVIA [Suspect]
     Indication: MULTIPLE SCLEROSIS
     Dosage: 250 UG, UNK
     Route: 058
     Dates: start: 20090311

REACTIONS (3)
  - AGGRESSION [None]
  - ASTHENIA [None]
  - INFLUENZA LIKE ILLNESS [None]
